FAERS Safety Report 15302662 (Version 2)
Quarter: 2018Q4

REPORT INFORMATION
  Report Type: Spontaneous
  Country: US (occurrence: US)
  Receive Date: 20180821
  Receipt Date: 20181029
  Transmission Date: 20190204
  Serious: Yes (Hospitalization)
  Sender: FDA-Public Use
  Company Number: US-ELI_LILLY_AND_COMPANY-US201808007624

PATIENT
  Age: 77 Year
  Sex: Female

DRUGS (1)
  1. VERZENIO [Suspect]
     Active Substance: ABEMACICLIB
     Indication: BREAST CANCER METASTATIC
     Dosage: UNK UNK, UNKNOWN
     Route: 065

REACTIONS (8)
  - Urinary tract infection [Recovered/Resolved]
  - Gait inability [Recovering/Resolving]
  - Cystitis [Unknown]
  - Kidney infection [Recovered/Resolved]
  - Renal failure [Recovered/Resolved]
  - Abdominal discomfort [Unknown]
  - Cystitis [Recovered/Resolved]
  - Delirium [Recovering/Resolving]
